FAERS Safety Report 8369855-2 (Version None)
Quarter: 2012Q2

REPORT INFORMATION
  Report Type: 
  Country: None (occurrence: None)
  Receive Date: 20120518
  Receipt Date: 20120516
  Transmission Date: 20120825
  Serious: Yes (Hospitalization, Other)
  Sender: FDA-Public Use
  Company Number: US-PFIZER INC-2012118949

PATIENT
  Sex: Female

DRUGS (1)
  1. ESTRING [Suspect]
     Dosage: UNK
     Route: 067

REACTIONS (4)
  - BLOOD IMMUNOGLOBULIN G DECREASED [None]
  - FUNGAL INFECTION [None]
  - BLOOD IMMUNOGLOBULIN E DECREASED [None]
  - PNEUMONIA [None]
